FAERS Safety Report 7449463-8 (Version None)
Quarter: 2011Q2

REPORT INFORMATION
  Report Type: 
  Country: None (occurrence: None)
  Receive Date: 20110502
  Receipt Date: 20110401
  Transmission Date: 20111010
  Serious: No
  Sender: FDA-Public Use
  Company Number: US-BAYER-2011-029800

PATIENT
  Sex: Female
  Weight: 63 kg

DRUGS (4)
  1. ALEVE [Suspect]
     Dosage: 1 DF, PRN
     Route: 048
  2. BENICAR [Concomitant]
  3. NEXIUM [Concomitant]
  4. ARAVA [Concomitant]

REACTIONS (1)
  - BLOOD PRESSURE INCREASED [None]
